FAERS Safety Report 9174718 (Version 1)
Quarter: 2013Q1

REPORT INFORMATION
  Report Type: Spontaneous
  Country: BR (occurrence: BR)
  Receive Date: 20130320
  Receipt Date: 20130320
  Transmission Date: 20140127
  Serious: Yes (Other)
  Sender: FDA-Public Use
  Company Number: PHHY2013BR026816

PATIENT
  Age: 47 Year
  Sex: Female

DRUGS (1)
  1. LEPONEX [Suspect]
     Indication: SCHIZOPHRENIA
     Dosage: TWO TABLETS (100MG) A DAY
     Route: 048

REACTIONS (3)
  - Lymphopenia [Unknown]
  - Neutrophilia [Unknown]
  - Leukocytosis [Unknown]
